FAERS Safety Report 9524771 (Version 1)
Quarter: 2013Q1

REPORT INFORMATION
  Report Type: Spontaneous
  Country: US (occurrence: None)
  Receive Date: 20130305
  Receipt Date: 20130305
  Transmission Date: 20140127
  Serious: Yes (Hospitalization)
  Sender: FDA-Public Use
  Company Number: 163-21880-12023020

PATIENT
  Age: 68 Year
  Sex: 0

DRUGS (27)
  1. REVLIMID [Suspect]
     Indication: PLASMA CELL MYELOMA
     Dosage: 10 MG CAPSULE, 14 DAYS ON, 7 DAYS OFF, PO
     Dates: start: 20120209
  2. ACARBOSE [Concomitant]
  3. ACYCLOVIR (ACICLOVIR) [Concomitant]
  4. ASA (ACETYLSALICYLIC ACID) [Concomitant]
  5. ASTEPRO (AZELASTINE HYDROCHLORIDE) [Concomitant]
  6. BACTROBAN (MUPIROCIN) [Concomitant]
  7. CALCIUM [Concomitant]
  8. CARDIZEM (DILTIAZEM HYDROCHLORIDE) [Concomitant]
  9. DEXAMETHASONE [Concomitant]
  10. DILAUDID (HYDROMORPHONE HYDROCHLORIDE) [Concomitant]
  11. DOCUSATE SODIUM [Concomitant]
  12. DOXYCYCLINE [Concomitant]
  13. DULERA [Concomitant]
  14. GLUCOSAMINE CHONDROITIN (GLUCOSAMINE W/CHONDROITIN SULFATE) [Concomitant]
  15. ISOSORBIDE MONONITRATE [Concomitant]
  16. LACTOBACILLUS (LACTOBACILLUS ACIDOPHILUS) [Concomitant]
  17. LASIX (FUROSEMIDE) [Concomitant]
  18. MULTI-MAX (MULTIVITAMINS W/MINERALS) [Concomitant]
  19. NITROSTAT (GLYCERYL TRINITRATE) [Concomitant]
  20. POTASSIUM [Concomitant]
  21. PROCHLORPERAZINE [Concomitant]
  22. PROTONIX [Concomitant]
  23. TYLENOL (PARACETAMOL) [Concomitant]
  24. ULTRAM (TRAMADOL HYDROCHLORIDE) [Concomitant]
  25. VITAMIN B12 (CYANOCOBALAMIN) [Concomitant]
  26. ZANAFLEX (TIZANIDINE HYDROCHLORIDE) [Concomitant]
  27. ZOMETA (ZOLEDRONIC ACID) [Concomitant]

REACTIONS (1)
  - Pyrexia [None]
